FAERS Safety Report 4852510-0 (Version None)
Quarter: 2005Q4

REPORT INFORMATION
  Report Type: 
  Country: None (occurrence: None)
  Receive Date: 20051213
  Receipt Date: 20051117
  Transmission Date: 20060501
  Serious: Yes (Other)
  Sender: FDA-Public Use
  Company Number: PHBS2005JP17062

PATIENT
  Age: 32 Year
  Sex: Female
  Weight: 45 kg

DRUGS (3)
  1. LUDIOMIL [Suspect]
     Indication: DEPRESSION
     Dosage: 10 MG/DAY
     Route: 048
     Dates: start: 20051102, end: 20051115
  2. SOLANAX [Concomitant]
     Dosage: 1 MG/DAY
     Route: 048
  3. PAXIL [Concomitant]
     Dosage: 30 MG/DAY
     Route: 048

REACTIONS (4)
  - COLD AGGLUTININS POSITIVE [None]
  - ERYTHEMA MULTIFORME [None]
  - RASH [None]
  - URTICARIA [None]
